FAERS Safety Report 7711469-9 (Version None)
Quarter: 2011Q3

REPORT INFORMATION
  Report Type: 
  Country: None (occurrence: None)
  Receive Date: 20110826
  Receipt Date: 20110822
  Transmission Date: 20111222
  Serious: Yes (Hospitalization, Other)
  Sender: FDA-Public Use
  Company Number: AU-ROXANE LABORATORIES, INC.-2011-RO-01173RO

PATIENT
  Age: 49 Year
  Sex: Male

DRUGS (4)
  1. VALACYCLOVIR HYDROCHLORIDE [Suspect]
     Dosage: 1000 MG
  2. OLANZAPINE [Suspect]
     Dosage: 2.5 G
  3. VENLAFAXINE [Suspect]
     Dosage: 4.2 G
  4. VALACYCLOVIR HYDROCHLORIDE [Suspect]
     Dosage: 30 G

REACTIONS (4)
  - OVERDOSE [None]
  - CRYSTALLURIA [None]
  - RENAL FAILURE ACUTE [None]
  - THROMBOCYTOPENIA [None]
